FAERS Safety Report 9728158 (Version 3)
Quarter: 2014Q4

REPORT INFORMATION
  Report Type: Spontaneous
  Country: JP (occurrence: None)
  Receive Date: 20131202
  Receipt Date: 20141229
  Transmission Date: 20150529
  Serious: Yes (Other)
  Sender: FDA-Public Use
  Company Number: JP-RRD-13-00044

PATIENT
  Age: 33 Year
  Sex: Female

DRUGS (7)
  1. COSMEGEN [Suspect]
     Active Substance: DACTINOMYCIN
     Indication: CHORIOCARCINOMA
     Dosage: 0.5 MG/BODY, INTRAVENOUS (NOT OTHERWISE SPECIFIED)
     Route: 042
  2. CYCLOPHOSPHAMIDE (CYCLOPHOSPHAMIDE) (UNKNOWN) (CYCLOPHOSPHAMIDE) [Concomitant]
  3. METHOTREXATE (METHOTREXATE) (UNKNOWN) (METHOTREXATE) [Concomitant]
  4. ETOPOSIDE (ETOPOSIDE) (UNKNOWN) (ETOPOSIDE) [Concomitant]
  5. VINCRISTINE (VINCRISTINE) (UNKNOWN) (VINCRISTINE) [Concomitant]
  6. FLUOROURACIL (FLUOROURACIL) (UNKNOWN) (FLUOROURACIL) [Concomitant]
  7. FOLINIC ACID (FOLONIC ACID) (UNKNOWN) (FOLINIC ACID) [Concomitant]

REACTIONS (7)
  - Disease complication [None]
  - Choriocarcinoma [None]
  - Anaemia [None]
  - Hepatic function abnormal [None]
  - Neutrophil count decreased [None]
  - Stomatitis [None]
  - Gingivitis [None]
